FAERS Safety Report 5545269-5 (Version None)
Quarter: 2007Q4

REPORT INFORMATION
  Report Type: 
  Country: None (occurrence: None)
  Receive Date: 20071211
  Receipt Date: 20071128
  Transmission Date: 20080405
  Serious: Yes (Hospitalization, Other)
  Sender: FDA-Public Use
  Company Number: PHHO2006JP04516

PATIENT
  Age: 65 Year
  Sex: Male

DRUGS (2)
  1. DIOVAN [Suspect]
     Indication: HYPERTENSION
     Dosage: 80 MG, QD
     Route: 048
     Dates: start: 20030128, end: 20060217
  2. MEDET [Concomitant]
     Indication: DIABETES MELLITUS
     Dates: start: 20040423

REACTIONS (4)
  - ABDOMINAL PAIN UPPER [None]
  - GASTRIC CANCER [None]
  - POSTOPERATIVE ILEUS [None]
  - SURGERY [None]
